FAERS Safety Report 13679512 (Version 1)
Quarter: 2017Q2

REPORT INFORMATION
  Report Type: Spontaneous
  Country: US (occurrence: US)
  Receive Date: 20170622
  Receipt Date: 20170622
  Transmission Date: 20170830
  Serious: No
  Sender: FDA-Public Use
  Company Number: US-ALLERGAN-1667479US

PATIENT
  Age: 40 Year
  Sex: Female

DRUGS (1)
  1. BENTYL [Suspect]
     Active Substance: DICYCLOMINE HYDROCHLORIDE
     Indication: GASTROINTESTINAL DISORDER
     Dosage: 10 MG, SINGLE
     Route: 042

REACTIONS (2)
  - Incorrect route of drug administration [Unknown]
  - Hyperhidrosis [Unknown]
